FAERS Safety Report 24611638 (Version 1)
Quarter: 2024Q4

REPORT INFORMATION
  Report Type: Spontaneous
  Country: JP (occurrence: JP)
  Receive Date: 20241113
  Receipt Date: 20241113
  Transmission Date: 20250114
  Serious: Yes (Hospitalization)
  Sender: AMGEN
  Company Number: JP-AMGEN-JPNSP2024220588

PATIENT

DRUGS (1)
  1. LUMAKRAS [Suspect]
     Active Substance: SOTORASIB
     Indication: Product used for unknown indication
     Dosage: UNK, QD
     Route: 048

REACTIONS (3)
  - Chest discomfort [Unknown]
  - Abdominal pain upper [Unknown]
  - General physical condition abnormal [Unknown]
